FAERS Safety Report 8288155-2 (Version None)
Quarter: 2012Q2

REPORT INFORMATION
  Report Type: 
  Country: None (occurrence: None)
  Receive Date: 20120416
  Receipt Date: 20120406
  Transmission Date: 20120825
  Serious: Yes (Other)
  Sender: FDA-Public Use
  Company Number: JP-GILEAD-2012-0051086

PATIENT
  Sex: Female

DRUGS (27)
  1. REVATIO [Concomitant]
     Dosage: 60MG PER DAY
     Route: 048
  2. FUROSEMIDE [Concomitant]
     Indication: OEDEMA
     Dosage: UNK
  3. CINAL [Concomitant]
     Dosage: 3IUAX PER DAY
     Route: 048
  4. ALLEGRA [Concomitant]
     Dosage: 120MG PER DAY
     Route: 048
  5. ALLEGRA [Concomitant]
     Dosage: 120MG PER DAY
     Route: 048
  6. INCREMIN C IRON [Concomitant]
     Indication: IRON DEFICIENCY ANAEMIA
     Dosage: 15ML PER DAY
     Route: 048
  7. REVATIO [Concomitant]
     Dosage: 60MG PER DAY
     Route: 048
  8. REVATIO [Concomitant]
     Indication: PULMONARY ARTERIAL HYPERTENSION
     Dosage: 60MG PER DAY
  9. RABEPRAZOLE SODIUM [Concomitant]
     Indication: PROPHYLAXIS
     Dosage: UNK
  10. RABEPRAZOLE SODIUM [Concomitant]
     Dosage: 10MG PER DAY
     Route: 048
  11. RABEPRAZOLE SODIUM [Concomitant]
     Dosage: 10MG PER DAY
     Route: 048
  12. CINAL [Concomitant]
     Dosage: 3IUAX PER DAY
     Route: 048
  13. PROMAC                             /01312301/ [Concomitant]
     Dosage: UNK
  14. AMBRISENTAN [Suspect]
     Indication: PULMONARY ARTERIAL HYPERTENSION
     Dosage: 2.5MG PER DAY
     Route: 048
     Dates: start: 20120206, end: 20120207
  15. WARFARIN SODIUM [Concomitant]
     Indication: PORTAL VEIN THROMBOSIS
     Dosage: 1MG PER DAY
  16. URSODIOL [Concomitant]
     Dosage: 600MG PER DAY
     Route: 048
  17. FUROSEMIDE [Concomitant]
     Dosage: 10MG PER DAY
     Route: 048
  18. LIVACT                             /00847901/ [Concomitant]
     Dosage: UNK
  19. PURSENNID                          /00142207/ [Concomitant]
     Indication: CONSTIPATION
     Dosage: UNK
  20. WARFARIN SODIUM [Concomitant]
     Dosage: 1MG PER DAY
     Route: 048
  21. URSODIOL [Concomitant]
     Dosage: 600MG PER DAY
     Route: 048
  22. ALLEGRA [Concomitant]
     Indication: RHINITIS ALLERGIC
     Dosage: UNK
  23. WARFARIN SODIUM [Concomitant]
     Dosage: 1MG PER DAY
     Route: 048
  24. SPIRONOLACTONE [Concomitant]
     Indication: OEDEMA
     Dosage: UNK
  25. CINAL [Concomitant]
     Dosage: UNK
  26. URSODIOL [Concomitant]
     Dosage: UNK
  27. FUROSEMIDE [Concomitant]
     Dosage: 10MG PER DAY
     Route: 048

REACTIONS (11)
  - HEPATIC ENCEPHALOPATHY [None]
  - ALTERED STATE OF CONSCIOUSNESS [None]
  - VOMITING [None]
  - HYPERAMMONAEMIA [None]
  - CONFUSIONAL STATE [None]
  - ABDOMINAL PAIN [None]
  - DECREASED APPETITE [None]
  - NAUSEA [None]
  - RASH [None]
  - ABDOMINAL PAIN UPPER [None]
  - MENTAL STATUS CHANGES [None]
